FAERS Safety Report 6046742-6 (Version None)
Quarter: 2009Q1

REPORT INFORMATION
  Report Type: 
  Country: None (occurrence: None)
  Receive Date: 20090122
  Receipt Date: 20090122
  Transmission Date: 20090719
  Serious: Yes (Life-Threatening, Hospitalization, Disabling, Other)
  Sender: FDA-Public Use
  Company Number: CL-PFIZER INC-2008100061

PATIENT

DRUGS (30)
  1. LINEZOLID [Suspect]
     Route: 042
     Dates: start: 20081122, end: 20081126
  2. ANIDULAFUNGIN [Suspect]
     Indication: SYSTEMIC CANDIDA
     Dosage: 100 MG, 1X/DAY
     Dates: start: 20081121
  3. ANIDULAFUNGIN [Suspect]
     Dates: end: 20081204
  4. NIFEDIPINE [Concomitant]
     Route: 048
     Dates: start: 20081126, end: 20081127
  5. LEVOTHYROXINE SODIUM [Concomitant]
     Route: 048
     Dates: start: 20081109, end: 20081124
  6. LOSARTAN POTASSIUM [Concomitant]
     Route: 048
     Dates: start: 20081125, end: 20081127
  7. ATENOLOL [Concomitant]
     Route: 048
     Dates: start: 20081109, end: 20081110
  8. OMEPRAZOLE [Concomitant]
     Route: 048
     Dates: start: 20081110, end: 20081111
  9. KETOPROFEN [Concomitant]
     Route: 042
     Dates: start: 20081111, end: 20081117
  10. MORPHINE [Concomitant]
     Route: 042
     Dates: start: 20081111, end: 20081114
  11. CEFTRIAXONE [Concomitant]
     Route: 042
     Dates: start: 20081111, end: 20081117
  12. METRONIDAZOLE [Concomitant]
     Route: 042
     Dates: start: 20081111, end: 20081117
  13. ONDANSETRON HYDROCHLORIDE [Concomitant]
     Route: 042
     Dates: start: 20081111, end: 20081117
  14. DALTEPARIN SODIUM [Concomitant]
     Route: 058
     Dates: start: 20081111, end: 20081122
  15. FAMOTIDINE [Concomitant]
     Route: 042
     Dates: start: 20081111, end: 20081124
  16. METOCLOPRAMIDE [Concomitant]
     Route: 042
     Dates: start: 20081112, end: 20081116
  17. LORAZEPAM [Concomitant]
     Route: 042
     Dates: start: 20081126, end: 20081126
  18. SULPERAZON [Concomitant]
     Route: 042
     Dates: start: 20081118, end: 20081118
  19. VANCOMYCIN HYDROCHLORIDE [Concomitant]
     Route: 042
     Dates: start: 20081118, end: 20081121
  20. IMIPENEM [Concomitant]
     Route: 042
     Dates: start: 20081118, end: 20081121
  21. FLUCONAZOLE [Concomitant]
     Route: 042
     Dates: start: 20081119, end: 20081119
  22. DIPYRONE TAB [Concomitant]
     Route: 042
     Dates: start: 20081119, end: 20081122
  23. IPRATROPIUM BROMIDE [Concomitant]
     Route: 055
     Dates: start: 20081118, end: 20081127
  24. PIPERACILLIN AND TAZOBACTAM [Concomitant]
     Route: 042
     Dates: start: 20081121, end: 20081127
  25. NITROGLYCERIN [Concomitant]
     Route: 042
     Dates: start: 20081122, end: 20081123
  26. RISPERIDONE [Concomitant]
     Route: 048
     Dates: start: 20081122, end: 20081122
  27. PHENYTOIN [Concomitant]
     Route: 042
     Dates: start: 20081126, end: 20081127
  28. PHENYTOIN [Concomitant]
     Route: 048
  29. ALBUMIN (HUMAN) [Concomitant]
     Route: 042
     Dates: start: 20081123, end: 20081127
  30. TEICOPLANIN [Suspect]
     Dosage: UNK
     Dates: start: 20081126, end: 20081211

REACTIONS (4)
  - CONVULSION [None]
  - GASTROINTESTINAL STOMA COMPLICATION [None]
  - INTESTINAL PERFORATION [None]
  - RESPIRATORY FAILURE [None]
